FAERS Safety Report 7079561-2 (Version None)
Quarter: 2010Q4

REPORT INFORMATION
  Report Type: 
  Country: None (occurrence: None)
  Receive Date: 20101022
  Receipt Date: 20101008
  Transmission Date: 20110411
  Serious: Yes (Hospitalization)
  Sender: FDA-Public Use
  Company Number: 020095

PATIENT
  Sex: Male
  Weight: 75 kg

DRUGS (6)
  1. CERTOLIZUMAB PEGOL (CERTOLIZUMAB PEGOL) [Suspect]
     Indication: RHEUMATOID ARTHRITIS
     Dosage: 400 MG 1X/2 WEEKS SUBCUTANEOUS
     Route: 058
     Dates: start: 20100902, end: 20101008
  2. TARGIN [Concomitant]
  3. PANTOPRAZOLE SODIUM [Concomitant]
  4. RAMIPRIL [Concomitant]
  5. PREDNISOLONE [Concomitant]
  6. ARCOXIA [Concomitant]

REACTIONS (3)
  - ABDOMINAL PAIN [None]
  - APPENDICITIS [None]
  - DRUG HYPERSENSITIVITY [None]
